FAERS Safety Report 10775766 (Version 1)
Quarter: 2015Q1

REPORT INFORMATION
  Report Type: Other
  Country: US (occurrence: US)
  Receive Date: 20150209
  Receipt Date: 20150209
  Transmission Date: 20150721
  Serious: Yes (Death)
  Sender: FDA-Public Use
  Company Number: US-FRI-1000074323

PATIENT
  Age: 42 Year
  Sex: Female

DRUGS (9)
  1. OPIOID [Suspect]
     Active Substance: UNSPECIFIED INGREDIENT
  2. AMPHETAMINE [Suspect]
     Active Substance: AMPHETAMINE
  3. BENZODIAZEPINE [Suspect]
     Active Substance: BENZODIAZEPINE
  4. AMITRIPTYLINE [Suspect]
     Active Substance: AMITRIPTYLINE
  5. AMPHETAMINE/DEXTROAMPHETAMINE [Suspect]
     Active Substance: AMPHETAMINE\DEXTROAMPHETAMINE
  6. CITALOPRAM [Suspect]
     Active Substance: CITALOPRAM HYDROBROMIDE
  7. CARISOPRODOL. [Suspect]
     Active Substance: CARISOPRODOL
  8. ETHANOL [Suspect]
     Active Substance: ALCOHOL
  9. CHLORAL HYDRATE [Suspect]
     Active Substance: CHLORAL HYDRATE

REACTIONS (2)
  - Cardio-respiratory arrest [Fatal]
  - Death [Fatal]
